FAERS Safety Report 8664608 (Version 5)
Quarter: 2013Q2

REPORT INFORMATION
  Report Type: Spontaneous
  Country: US (occurrence: US)
  Receive Date: 20120713
  Receipt Date: 20130530
  Transmission Date: 20140414
  Serious: Yes (Other)
  Sender: FDA-Public Use
  Company Number: US-MILLENNIUM PHARMACEUTICALS, INC.-2012-04770

PATIENT
  Age: 53 Year
  Sex: Female

DRUGS (5)
  1. VELCADE [Suspect]
     Indication: PLASMA CELL MYELOMA
     Dosage: 2.3 MG, CYCLIC
     Route: 040
     Dates: start: 20120312, end: 20120423
  2. VELCADE [Suspect]
     Dosage: UNK UNK, CYCLIC
     Route: 058
     Dates: end: 201206
  3. VELCADE [Suspect]
     Dosage: 2.3 MG, CYCLIC
     Route: 058
     Dates: start: 20120611
  4. VELCADE [Suspect]
     Dosage: 1.2 MG, CYCLIC
     Dates: start: 20120709, end: 20120719
  5. ZOFRAN                             /00955301/ [Concomitant]
     Indication: PREMEDICATION
     Dosage: 8 MG, UNK
     Route: 048

REACTIONS (9)
  - Neurotoxicity [Unknown]
  - Pain in extremity [Recovering/Resolving]
  - Neuropathy peripheral [Not Recovered/Not Resolved]
  - Pain in extremity [Recovering/Resolving]
  - Fatigue [Unknown]
  - Nausea [Unknown]
  - Vomiting [Unknown]
  - Pain in extremity [Unknown]
  - Herpes zoster [Unknown]
